FAERS Safety Report 4746503-1 (Version None)
Quarter: 2005Q3

REPORT INFORMATION
  Report Type: 
  Country: None (occurrence: None)
  Receive Date: 20050815
  Receipt Date: 20050803
  Transmission Date: 20060218
  Serious: Yes (Hospitalization)
  Sender: FDA-Public Use
  Company Number: WAES 0508DEU00048

PATIENT
  Age: 65 Year
  Sex: Female

DRUGS (2)
  1. VYTORIN [Suspect]
     Indication: DIABETES MELLITUS
     Dosage: 10-20 MG/DAILY, PO
     Route: 048
     Dates: start: 20040601, end: 20040707
  2. VYTORIN [Suspect]
     Indication: HYPERCHOLESTEROLAEMIA
     Dosage: 10-20 MG/DAILY, PO
     Route: 048
     Dates: start: 20040601, end: 20040707

REACTIONS (3)
  - BLOOD CREATINE PHOSPHOKINASE INCREASED [None]
  - BLOOD CREATINE PHOSPHOKINASE MB INCREASED [None]
  - MYALGIA [None]
